FAERS Safety Report 24237581 (Version 1)
Quarter: 2024Q3

REPORT INFORMATION
  Report Type: Spontaneous
  Country: ZA (occurrence: None)
  Receive Date: 20240822
  Receipt Date: 20240822
  Transmission Date: 20241016
  Serious: Yes (Hospitalization)
  Sender: ASTRAZENECA
  Company Number: 2024A185621

PATIENT
  Age: 22 Year
  Sex: Female

DRUGS (6)
  1. DAPAGLIFLOZIN [Suspect]
     Active Substance: DAPAGLIFLOZIN
     Indication: Diabetes mellitus
     Dosage: 5.0MG UNKNOWN
     Route: 048
  2. LANSOPRAZOLE [Concomitant]
     Active Substance: LANSOPRAZOLE
     Indication: Ulcer
     Dosage: 30.0MG UNKNOWN
     Route: 048
  3. ALLERGEX [Concomitant]
     Indication: Hypersensitivity
     Dosage: 4.0MG UNKNOWN
     Route: 048
  4. DEMAZIN COLD AND FLU [Concomitant]
     Route: 048
  5. STREPSILS INTENSIVE [Concomitant]
     Dosage: 8.75MG UNKNOWN
     Route: 048
  6. CLOTRIMAZOLE DIS-CHEM [Concomitant]
     Dosage: 1.0% UNKNOWN
     Route: 061

REACTIONS (4)
  - Hyperchlorhydria [Unknown]
  - Renal failure [Unknown]
  - Vomiting [Unknown]
  - Hernia [Unknown]

NARRATIVE: CASE EVENT DATE: 20240401
